FAERS Safety Report 19880262 (Version 1)
Quarter: 2021Q3

REPORT INFORMATION
  Report Type: Spontaneous
  Country: US (occurrence: US)
  Receive Date: 20210925
  Receipt Date: 20210925
  Transmission Date: 20211014
  Serious: No
  Sender: FDA-Public Use
  Company Number: US-009507513-2109USA004402

PATIENT
  Sex: Male

DRUGS (1)
  1. VERQUVO [Suspect]
     Active Substance: VERICIGUAT
     Indication: CARDIAC FAILURE
     Dosage: TITER TO 10 MILLIGRAM, UNKNOWN
     Route: 048

REACTIONS (2)
  - Weight increased [Recovering/Resolving]
  - Oedema peripheral [Recovering/Resolving]
